FAERS Safety Report 9626519 (Version 1)
Quarter: 2013Q4

REPORT INFORMATION
  Report Type: Spontaneous
  Country: US (occurrence: US)
  Receive Date: 20131016
  Receipt Date: 20131016
  Transmission Date: 20140711
  Serious: Yes (Life-Threatening, Hospitalization, Other)
  Sender: FDA-Public Use
  Company Number: US-JNJFOC-20131005829

PATIENT
  Age: 17 Year
  Sex: Male

DRUGS (1)
  1. PARACETAMOL/DIPHENHYDRAMINE [Suspect]
     Indication: PRODUCT USED FOR UNKNOWN INDICATION
     Dosage: 500 MG ACETAMINOPHEN/25 MG DIPHENHYDRAMINE
     Route: 065

REACTIONS (6)
  - Hepatic encephalopathy [Unknown]
  - Anticholinergic syndrome [Recovered/Resolved]
  - Hyperammonaemia [Recovering/Resolving]
  - Drug-induced liver injury [Unknown]
  - Toxicity to various agents [Unknown]
  - Overdose [Unknown]
